FAERS Safety Report 7342963-0 (Version None)
Quarter: 2011Q1

REPORT INFORMATION
  Report Type: 
  Country: None (occurrence: None)
  Receive Date: 20110301
  Receipt Date: 20110214
  Transmission Date: 20110831
  Serious: Yes (Other)
  Sender: FDA-Public Use
  Company Number: AUR-APL-2011-00571

PATIENT

DRUGS (3)
  1. TOPIRAMATE [Suspect]
  2. VALPROIC ACID [Suspect]
  3. LEVETIRACETAM [Suspect]

REACTIONS (1)
  - PATENT DUCTUS ARTERIOSUS [None]
